FAERS Safety Report 9719937 (Version 3)
Quarter: 2013Q4

REPORT INFORMATION
  Report Type: Spontaneous
  Country: US (occurrence: US)
  Receive Date: 20131128
  Receipt Date: 20131206
  Transmission Date: 20140711
  Serious: Yes (Other)
  Sender: FDA-Public Use
  Company Number: US-DRREDDYS-USA/USA/13/0035894

PATIENT
  Age: 14 Year
  Sex: Female

DRUGS (3)
  1. ZENATANE [Suspect]
     Indication: ACNE
     Route: 065
     Dates: start: 20130731, end: 20131126
  2. CONCERTA [Concomitant]
     Indication: DEPRESSION
     Route: 065
  3. LUVOX [Concomitant]
     Indication: DEPRESSION
     Route: 065

REACTIONS (1)
  - Suicidal ideation [Recovered/Resolved]
